FAERS Safety Report 7596228-2 (Version None)
Quarter: 2011Q3

REPORT INFORMATION
  Report Type: 
  Country: None (occurrence: None)
  Receive Date: 20110707
  Receipt Date: 20110704
  Transmission Date: 20111222
  Serious: Yes (Hospitalization, Other)
  Sender: FDA-Public Use
  Company Number: BE-AMGEN-BELSP2011032035

PATIENT
  Age: 83 Year
  Sex: Male
  Weight: 77 kg

DRUGS (2)
  1. PANTOPRAZOLE [Concomitant]
     Dosage: 40 MG, UNK
     Route: 048
  2. VECTIBIX [Suspect]
     Indication: PRODUCT USED FOR UNKNOWN INDICATION
     Dosage: 457 MG, UNK
     Dates: start: 20101116, end: 20110618

REACTIONS (1)
  - EJECTION FRACTION DECREASED [None]
